FAERS Safety Report 5869289-6 (Version None)
Quarter: 2008Q3

REPORT INFORMATION
  Report Type: 
  Country: None (occurrence: None)
  Receive Date: 20080828
  Receipt Date: 20080812
  Transmission Date: 20090109
  Serious: Yes (Hospitalization)
  Sender: FDA-Public Use
  Company Number: B0533693A

PATIENT
  Age: 35 Year
  Sex: Female

DRUGS (2)
  1. LAMOTRIGINE [Suspect]
     Indication: AFFECT LABILITY
  2. FLUOXETINE [Suspect]
     Indication: DEPRESSION

REACTIONS (6)
  - CONFUSIONAL STATE [None]
  - DELIRIUM [None]
  - DRUG INTERACTION [None]
  - DRUG TOXICITY [None]
  - HALLUCINATIONS, MIXED [None]
  - INCORRECT DOSE ADMINISTERED [None]
